FAERS Safety Report 7542310-5 (Version None)
Quarter: 2011Q2

REPORT INFORMATION
  Report Type: 
  Country: None (occurrence: None)
  Receive Date: 20110606
  Receipt Date: 20110520
  Transmission Date: 20111010
  Serious: Yes (Other)
  Sender: FDA-Public Use
  Company Number: AUR-APL-2011-01776

PATIENT
  Age: 72 Year
  Sex: Female
  Weight: 87 kg

DRUGS (1)
  1. AMLODIPINE BESYLATE [Suspect]
     Indication: HYPERTENSION
     Dosage: 10MG-ORAL
     Route: 048
     Dates: start: 20030101, end: 20110101

REACTIONS (2)
  - GINGIVAL HYPERPLASIA [None]
  - GINGIVAL BLEEDING [None]
